FAERS Safety Report 14624372 (Version 2)
Quarter: 2018Q2

REPORT INFORMATION
  Report Type: Spontaneous
  Country: PT (occurrence: PT)
  Receive Date: 20180312
  Receipt Date: 20180504
  Transmission Date: 20180711
  Serious: Yes (Other)
  Sender: FDA-Public Use
  Company Number: PT-009507513-1803PRT001895

PATIENT
  Age: 45 Year
  Sex: Male
  Weight: 44 kg

DRUGS (10)
  1. METHADONE HYDROCHLORIDE. [Concomitant]
     Active Substance: METHADONE HYDROCHLORIDE
     Indication: PRODUCT USED FOR UNKNOWN INDICATION
     Dosage: 25 MG, QD
     Route: 048
  2. SPIRIVA [Concomitant]
     Active Substance: TIOTROPIUM BROMIDE MONOHYDRATE
     Indication: ASTHMA
     Dosage: 1 DF (1+0), QD
     Route: 055
  3. VITAMINS (UNSPECIFIED) [Concomitant]
     Active Substance: VITAMINS
     Indication: MULTI-VITAMIN DEFICIENCY
     Dosage: 1 TABLET AT LUNCH, QD
     Route: 048
  4. ZEPATIER [Suspect]
     Active Substance: ELBASVIR\GRAZOPREVIR
     Indication: HEPATITIS C
     Dosage: 1 DF, QD
     Route: 048
     Dates: start: 20180117
  5. COPEGUS [Concomitant]
     Active Substance: RIBAVIRIN
     Indication: HEPATITIS C
     Dosage: 1000 MG, QD
     Route: 048
     Dates: start: 20180117
  6. SYMBICORT [Concomitant]
     Active Substance: BUDESONIDE\FORMOTEROL FUMARATE DIHYDRATE
     Indication: ASTHMA
     Dosage: 4 DF (2+2), QD
     Route: 055
  7. OXAZEPAM. [Concomitant]
     Active Substance: OXAZEPAM
     Indication: ALCOHOLISM
     Dosage: 15MG 3 TIMES DAILY
     Route: 048
  8. TIAPRIDE [Concomitant]
     Active Substance: TIAPRIDE
     Indication: ALCOHOLISM
     Dosage: 100 MG, Q8H
     Route: 048
  9. VENTILAN (ALBUTEROL SULFATE) [Concomitant]
     Indication: ASTHMA
     Dosage: AS NECESSARY
     Route: 055
  10. ESOMEPRAZOLE [Concomitant]
     Active Substance: ESOMEPRAZOLE
     Indication: HIATUS HERNIA
     Dosage: 2 DF, QD (ASLO REPORTED AS TWICE DAILY)
     Route: 048

REACTIONS (3)
  - Asthenia [Recovered/Resolved]
  - Weight decreased [Unknown]
  - Feeling abnormal [Recovered/Resolved]

NARRATIVE: CASE EVENT DATE: 2018
